FAERS Safety Report 6652466-4 (Version None)
Quarter: 2010Q1

REPORT INFORMATION
  Report Type: 
  Country: None (occurrence: None)
  Receive Date: 20100323
  Receipt Date: 20100312
  Transmission Date: 20100710
  Serious: Yes (Death, Life-Threatening, Other)
  Sender: FDA-Public Use
  Company Number: 2009-04353

PATIENT
  Age: 75 Year
  Sex: Female
  Weight: 52 kg

DRUGS (7)
  1. VELCADE [Suspect]
     Indication: MULTIPLE MYELOMA
     Dosage: 1.5 MG, CYCLIC, INTRAVENOUS
     Route: 042
     Dates: start: 20090806, end: 20090806
  2. DEXAMETHASONE [Concomitant]
  3. LANSOPRAZOLE [Concomitant]
  4. MAGNESIUM OXIDE (MAGNESIUM OXIDE) [Concomitant]
  5. DIFLUCAN [Concomitant]
  6. SELBEX (TEPRENONE) [Concomitant]
  7. TEGRETOL [Concomitant]

REACTIONS (5)
  - DISEASE PROGRESSION [None]
  - MULTIPLE MYELOMA [None]
  - RENAL FAILURE [None]
  - SICK SINUS SYNDROME [None]
  - TUMOUR LYSIS SYNDROME [None]
